FAERS Safety Report 5815861-9 (Version None)
Quarter: 2008Q3

REPORT INFORMATION
  Report Type: 
  Country: None (occurrence: None)
  Receive Date: 20080715
  Receipt Date: 20080605
  Transmission Date: 20090109
  Serious: Yes (Disabling)
  Sender: FDA-Public Use
  Company Number: SP01936

PATIENT
  Age: 43 Year
  Sex: Female
  Weight: 68.4932 kg

DRUGS (1)
  1. OSMOPREP [Suspect]
     Indication: COLONOSCOPY
     Dosage: ORAL
     Route: 048
     Dates: start: 20080604, end: 20080604

REACTIONS (2)
  - DYSPNOEA [None]
  - RASH [None]
